FAERS Safety Report 7079563-6 (Version None)
Quarter: 2010Q4

REPORT INFORMATION
  Report Type: 
  Country: None (occurrence: None)
  Receive Date: 20101022
  Receipt Date: 20101006
  Transmission Date: 20110411
  Serious: Yes (Hospitalization)
  Sender: FDA-Public Use
  Company Number: 2010004347

PATIENT
  Age: 58 Year
  Sex: Female

DRUGS (5)
  1. TARCEVA [Suspect]
     Indication: NON-SMALL CELL LUNG CANCER
     Dosage: 150 MG, QD, ORAL
     Route: 048
     Dates: start: 20100907, end: 20100925
  2. VALSARTAN [Concomitant]
  3. SIMVASTATIN [Concomitant]
  4. CLARITHROMYCIN [Concomitant]
  5. COUGH SYRUP [Concomitant]

REACTIONS (2)
  - TACHYCARDIA [None]
  - TACHYPNOEA [None]
